FAERS Safety Report 5323703-3 (Version None)
Quarter: 2007Q2

REPORT INFORMATION
  Report Type: 
  Country: None (occurrence: None)
  Receive Date: 20070514
  Receipt Date: 20070501
  Transmission Date: 20071010
  Serious: Yes (Other)
  Sender: FDA-Public Use
  Company Number: US-ROCHE-495619

PATIENT
  Age: 35 Year
  Sex: Female

DRUGS (1)
  1. XELODA [Suspect]
     Route: 065
     Dates: start: 20040101

REACTIONS (3)
  - AGGRESSION [None]
  - CONVULSION [None]
  - LOSS OF CONSCIOUSNESS [None]
